FAERS Safety Report 9665401 (Version 2)
Quarter: 2013Q4

REPORT INFORMATION
  Report Type: Spontaneous
  Country: US (occurrence: US)
  Receive Date: 20131104
  Receipt Date: 20131126
  Transmission Date: 20140711
  Serious: Yes (Death, Other)
  Sender: FDA-Public Use
  Company Number: US-JNJFOC-20131100280

PATIENT
  Age: 29 Year
  Sex: Female

DRUGS (5)
  1. IBUPROFEN [Suspect]
     Indication: PRODUCT USED FOR UNKNOWN INDICATION
     Route: 065
  2. BUPROPION [Suspect]
     Indication: PRODUCT USED FOR UNKNOWN INDICATION
     Route: 065
  3. ESCITALOPRAM OXALATE [Suspect]
     Indication: PRODUCT USED FOR UNKNOWN INDICATION
     Route: 065
  4. DESVENLAFAXINE SUCCINATE MONOHYDRATE [Suspect]
     Indication: PRODUCT USED FOR UNKNOWN INDICATION
     Route: 065
  5. QUETIAPINE FUMARATE [Suspect]
     Indication: PRODUCT USED FOR UNKNOWN INDICATION
     Route: 065

REACTIONS (11)
  - Brain injury [Fatal]
  - Pulseless electrical activity [Recovered/Resolved]
  - Hypotension [Recovered/Resolved]
  - Circulatory collapse [Unknown]
  - Coma scale abnormal [Unknown]
  - Sinus tachycardia [Recovered/Resolved]
  - Overdose [Unknown]
  - Gastrointestinal sounds abnormal [Unknown]
  - Areflexia [Unknown]
  - Pupil fixed [Unknown]
  - Dry skin [Unknown]
